FAERS Safety Report 4640985-1 (Version None)
Quarter: 2005Q2

REPORT INFORMATION
  Report Type: 
  Country: None (occurrence: None)
  Receive Date: 20050421
  Receipt Date: 20050301
  Transmission Date: 20051028
  Serious: Yes (Disabling)
  Sender: FDA-Public Use
  Company Number: US-BOEHRINGER INGELHEIM PHARMACEUTICALS, INC.-2005-BP-03364BP

PATIENT
  Age: 75 Year
  Sex: Female

DRUGS (2)
  1. MICARDIS [Suspect]
     Indication: HYPERTENSION
     Route: 048
     Dates: start: 20041001, end: 20050302
  2. CARDIZEM [Concomitant]
     Indication: HYPERTENSION

REACTIONS (2)
  - CATARACT [None]
  - VISUAL DISTURBANCE [None]
